FAERS Safety Report 6382085-9 (Version None)
Quarter: 2009Q3

REPORT INFORMATION
  Report Type: 
  Country: None (occurrence: None)
  Receive Date: 20090930
  Receipt Date: 20090922
  Transmission Date: 20100115
  Serious: Yes (Other)
  Sender: FDA-Public Use
  Company Number: US-ASTRAZENECA-2009SE14700

PATIENT
  Age: 75 Year
  Sex: Male

DRUGS (4)
  1. ZOLADEX [Suspect]
     Route: 058
     Dates: end: 20080301
  2. CASODEX [Suspect]
     Route: 048
  3. PROSCAR [Concomitant]
  4. ZOMETA [Concomitant]

REACTIONS (3)
  - METASTASES TO BONE [None]
  - PROSTATIC SPECIFIC ANTIGEN INCREASED [None]
  - URINARY TRACT DISORDER [None]
